FAERS Safety Report 4691144-8 (Version None)
Quarter: 2005Q2

REPORT INFORMATION
  Report Type: 
  Country: None (occurrence: None)
  Receive Date: 20050610
  Receipt Date: 20050531
  Transmission Date: 20051028
  Serious: Yes (Hospitalization, Other)
  Sender: FDA-Public Use
  Company Number: 2005-06-0126

PATIENT
  Age: 61 Year
  Sex: Male

DRUGS (5)
  1. SALBUTAMOL SULPHATE ORAL AEROSOL [Suspect]
     Dosage: ORAL AER INH
     Route: 048
  2. MICARDIS [Suspect]
     Dosage: 80 MG 1QD
     Dates: start: 20010815
  3. SIMVASTATIN [Suspect]
     Dosage: 40 MG QD
  4. BECLOMETHASONE DIPROPIONATE [Suspect]
  5. SALMETEROL [Suspect]

REACTIONS (1)
  - ACUTE MYOCARDIAL INFARCTION [None]
